FAERS Safety Report 10356894 (Version 2)
Quarter: 2014Q3

REPORT INFORMATION
  Report Type: Report from Study
  Country: US (occurrence: US)
  Receive Date: 20140801
  Receipt Date: 20140801
  Transmission Date: 20150326
  Serious: Yes (Hospitalization)
  Sender: FDA-Public Use
  Company Number: US-BAYER-2014-072344

PATIENT
  Age: 56 Year
  Sex: Male

DRUGS (1)
  1. STIVARGA [Suspect]
     Active Substance: REGORAFENIB
     Indication: COLON CANCER
     Dosage: 160 MG, QD
     Route: 048
     Dates: start: 20140430

REACTIONS (8)
  - Hypoaesthesia [None]
  - Back pain [None]
  - Decreased appetite [None]
  - Diarrhoea [None]
  - Pain in extremity [None]
  - Dyspnoea [None]
  - Pain in extremity [None]
  - Hyperhidrosis [None]

NARRATIVE: CASE EVENT DATE: 20140507
